FAERS Safety Report 7014448-2 (Version None)
Quarter: 2010Q3

REPORT INFORMATION
  Report Type: 
  Country: None (occurrence: None)
  Receive Date: 20100927
  Receipt Date: 20100917
  Transmission Date: 20110219
  Serious: Yes (Hospitalization)
  Sender: FDA-Public Use
  Company Number: GB-TEVA-249515ISR

PATIENT
  Age: 60 Year
  Sex: Male

DRUGS (1)
  1. VINCRISTINE [Suspect]
     Indication: GLIOMA

REACTIONS (1)
  - JAUNDICE CHOLESTATIC [None]
